FAERS Safety Report 7640974-9 (Version None)
Quarter: 2011Q3

REPORT INFORMATION
  Report Type: 
  Country: None (occurrence: None)
  Receive Date: 20110721
  Receipt Date: 20110712
  Transmission Date: 20111222
  Serious: Yes (Life-Threatening)
  Sender: FDA-Public Use
  Company Number: TCI2011A03687

PATIENT
  Age: 73 Year
  Sex: Male

DRUGS (14)
  1. DOXAZOSIN MESYLATE [Concomitant]
  2. LANSOPRAZOLE [Suspect]
     Indication: GASTROOESOPHAGEAL REFLUX DISEASE
     Dosage: 60 MG (30 MG, 2 IN 1 D), INTRAVENOUS DRIP
     Route: 041
     Dates: start: 20100921, end: 20100927
  3. AMLODIN OD (AMLODIPINE BESILATE) [Concomitant]
  4. NASEA (RAMOSETRON HYDROCHLORIDE) [Concomitant]
  5. FLUOROURACIL [Suspect]
     Indication: OESOPHAGEAL ADENOCARCINOMA STAGE II
     Dosage: 24 H CONTINUOUS INFUSION (1100 MG, 1 IN 1 D), INTRAVENOUS DRIP
     Route: 041
     Dates: start: 20100819, end: 20100825
  6. FLUOROURACIL [Suspect]
     Indication: OESOPHAGEAL ADENOCARCINOMA STAGE II
     Dosage: 24 H CONTINUOUS INFUSION (1100 MG, 1 IN 1 D), INTRAVENOUS DRIP
     Route: 041
     Dates: start: 20100723, end: 20100729
  7. ADRIAMYCIN PFS [Suspect]
     Indication: OESOPHAGEAL ADENOCARCINOMA STAGE II
     Dosage: 55; 44  MG (55; 44 MG, 1 IN 1 D), INTRAVENOUS DRIP
     Route: 041
     Dates: start: 20100723, end: 20100723
  8. BEZATOL SR (BEZAFIBRATE) [Concomitant]
  9. LANSOPRAZOLE [Suspect]
     Indication: GASTROOESOPHAGEAL REFLUX DISEASE
     Dosage: 30 MG (30 MG, 1-2 IN 1 D), PER ORAL
     Route: 048
     Dates: start: 20100806, end: 20100920
  10. LANSOPRAZOLE [Suspect]
     Indication: GASTROOESOPHAGEAL REFLUX DISEASE
     Dosage: 30 MG (30 MG, 1-2 IN 1 D), PER ORAL
     Route: 048
     Dates: start: 20110114
  11. CISPLATIN [Suspect]
     Indication: OESOPHAGEAL ADENOCARCINOMA STAGE II
     Dosage: 110, 88 MG (88 MG, 1 IN 1 D), INTRAVENOUS DRIP
     Route: 041
     Dates: start: 20100723, end: 20100723
  12. CISPLATIN [Suspect]
     Indication: OESOPHAGEAL ADENOCARCINOMA STAGE II
     Dosage: 110, 88 MG (88 MG, 1 IN 1 D), INTRAVENOUS DRIP
     Route: 041
     Dates: start: 20100819, end: 20100819
  13. ACTOS [Concomitant]
  14. CEFAZOLIN SODIUM [Concomitant]

REACTIONS (12)
  - OPERATIVE HAEMORRHAGE [None]
  - PROCEDURAL PAIN [None]
  - SKIN GRAFT [None]
  - AEROMONA INFECTION [None]
  - SEPTIC SHOCK [None]
  - GASTROINTESTINAL NECROSIS [None]
  - PLEURAL EFFUSION [None]
  - ACIDOSIS [None]
  - TACHYPNOEA [None]
  - POSTOPERATIVE WOUND INFECTION [None]
  - ASCITES [None]
  - GASTROINTESTINAL ISCHAEMIA [None]
